FAERS Safety Report 4979591-8 (Version None)
Quarter: 2006Q2

REPORT INFORMATION
  Report Type: 
  Country: None (occurrence: None)
  Receive Date: 20060418
  Receipt Date: 20060403
  Transmission Date: 20061013
  Serious: Yes (Other)
  Sender: FDA-Public Use
  Company Number: S06-FRA-01376-01

PATIENT
  Age: 47 Year
  Sex: Female

DRUGS (4)
  1. SEROPLEX                 (ESCITALOPRAM) [Suspect]
     Dosage: 10 MG QD PO
     Route: 048
     Dates: start: 20060309, end: 20060321
  2. BECONASE [Suspect]
     Indication: ASTHMA
  3. DESLORATADINE [Concomitant]
  4. SEREVENT [Concomitant]

REACTIONS (2)
  - EPISTAXIS [None]
  - SINUSITIS [None]
